FAERS Safety Report 14055307 (Version 1)
Quarter: 2017Q4

REPORT INFORMATION
  Report Type: Spontaneous
  Country: US (occurrence: US)
  Receive Date: 20171006
  Receipt Date: 20171006
  Transmission Date: 20180321
  Serious: No
  Sender: FDA-Public Use
  Company Number: US-JNJFOC-20170817213

PATIENT
  Age: 70 Year
  Sex: Female
  Weight: 63.5 kg

DRUGS (6)
  1. CALCIUM [Concomitant]
     Active Substance: CALCIUM
     Indication: ROUTINE HEALTH MAINTENANCE
     Dosage: 600
     Route: 065
  2. VITAMIN D [Concomitant]
     Active Substance: CHOLECALCIFEROL
     Indication: ROUTINE HEALTH MAINTENANCE
     Route: 065
  3. UBIQUINOL [Concomitant]
     Active Substance: UBIQUINOL
     Indication: ROUTINE HEALTH MAINTENANCE
     Route: 065
  4. WOMENS ROGAINE UNSCENTED [Suspect]
     Active Substance: MINOXIDIL
     Route: 061
  5. WOMENS ROGAINE UNSCENTED [Suspect]
     Active Substance: MINOXIDIL
     Indication: ALOPECIA
     Dosage: 3/4 CUP
     Route: 061
  6. IRON [Concomitant]
     Active Substance: IRON
     Indication: ROUTINE HEALTH MAINTENANCE
     Route: 065

REACTIONS (4)
  - Hair texture abnormal [Recovering/Resolving]
  - Wrong technique in product usage process [Not Recovered/Not Resolved]
  - Overdose [Unknown]
  - Hair colour changes [Not Recovered/Not Resolved]
